FAERS Safety Report 18448568 (Version 3)
Quarter: 2020Q4

REPORT INFORMATION
  Report Type: Report from Study
  Country: BE (occurrence: BE)
  Receive Date: 20201030
  Receipt Date: 20201221
  Transmission Date: 20210114
  Serious: Yes (Other)
  Sender: FDA-Public Use
  Company Number: BE-BRISTOL-MYERS SQUIBB COMPANY-BMS-2020-085846

PATIENT
  Age: 56 Year
  Sex: Female

DRUGS (3)
  1. NIVOLUMAB [Suspect]
     Active Substance: NIVOLUMAB
     Dosage: UNK
     Route: 065
     Dates: start: 20201116
  2. NIVOLUMAB [Suspect]
     Active Substance: NIVOLUMAB
     Indication: MALIGNANT MELANOMA
     Dosage: UNK UNK, Q3WK
     Route: 065
     Dates: start: 20201005
  3. IPILIMUMAB [Suspect]
     Active Substance: IPILIMUMAB
     Indication: MALIGNANT MELANOMA
     Dosage: UNK, Q3WK
     Route: 065
     Dates: start: 20201005

REACTIONS (12)
  - Tachycardia [Unknown]
  - Rash macular [Unknown]
  - Hypothyroidism [Unknown]
  - Hypertension [Unknown]
  - Pyrexia [Unknown]
  - Skin exfoliation [Recovered/Resolved]
  - Skin tightness [Unknown]
  - Oropharyngeal pain [Unknown]
  - Hyperthyroidism [Recovered/Resolved]
  - Headache [Unknown]
  - Insomnia [Unknown]
  - Fatigue [Unknown]

NARRATIVE: CASE EVENT DATE: 20201013
